FAERS Safety Report 20519595 (Version 2)
Quarter: 2022Q3

REPORT INFORMATION
  Report Type: Spontaneous
  Country: CN (occurrence: CN)
  Receive Date: 20220225
  Receipt Date: 20220713
  Transmission Date: 20221027
  Serious: Yes (Life-Threatening, Hospitalization, Other)
  Sender: FDA-Public Use
  Company Number: CN-GLAXOSMITHCLINE-CN2022GSK035234

PATIENT

DRUGS (1)
  1. ZEJULA [Suspect]
     Active Substance: NIRAPARIB
     Indication: Ovarian cancer
     Dosage: 200 MG, QD
     Route: 048
     Dates: start: 20211226, end: 20220108

REACTIONS (6)
  - Thrombocytopenia [Recovered/Resolved]
  - Electrocardiogram ST segment depression [Recovered/Resolved]
  - Electrocardiogram ST segment elevation [Recovered/Resolved]
  - Dyspnoea [Recovering/Resolving]
  - Chest discomfort [Recovering/Resolving]
  - Troponin increased [Recovered/Resolved]

NARRATIVE: CASE EVENT DATE: 20220101
